FAERS Safety Report 24331433 (Version 2)
Quarter: 2024Q4

REPORT INFORMATION
  Report Type: Spontaneous
  Country: US (occurrence: US)
  Receive Date: 20240918
  Receipt Date: 20241209
  Transmission Date: 20250115
  Serious: No
  Sender: ABBVIE
  Company Number: US-ABBVIE-5923402

PATIENT
  Sex: Male
  Weight: 2.8 kg

DRUGS (9)
  1. BOTOX [Suspect]
     Active Substance: ONABOTULINUMTOXINA
     Indication: Maternal exposure timing unspecified
     Route: 064
  2. ADVIL [Suspect]
     Active Substance: IBUPROFEN
     Indication: Maternal exposure timing unspecified
     Route: 064
  3. AMITRIPTYLINE [Suspect]
     Active Substance: AMITRIPTYLINE
     Indication: Maternal exposure timing unspecified
     Route: 064
  4. FROVATRIPTAN [Suspect]
     Active Substance: FROVATRIPTAN
     Indication: Maternal exposure timing unspecified
     Route: 064
  5. LIDOCAINE [Suspect]
     Active Substance: LIDOCAINE
     Indication: Maternal exposure timing unspecified
     Route: 064
  6. MAXALT [Suspect]
     Active Substance: RIZATRIPTAN BENZOATE
     Indication: Maternal exposure timing unspecified
     Route: 064
  7. NURTEC ODT [Suspect]
     Active Substance: RIMEGEPANT SULFATE
     Indication: Maternal exposure timing unspecified
     Route: 064
  8. PROPRANOLOL [Suspect]
     Active Substance: PROPRANOLOL HYDROCHLORIDE
     Indication: Maternal exposure timing unspecified
     Route: 064
  9. TYLENOL [Suspect]
     Active Substance: ACETAMINOPHEN
     Indication: Maternal exposure timing unspecified
     Route: 064

REACTIONS (2)
  - Nonreassuring foetal heart rate pattern [Recovered/Resolved]
  - Foetal exposure during pregnancy [Unknown]

NARRATIVE: CASE EVENT DATE: 20240712
